FAERS Safety Report 4838895-X (Version None)
Quarter: 2005Q4

REPORT INFORMATION
  Report Type: 
  Country: None (occurrence: None)
  Receive Date: 20051129
  Receipt Date: 20051027
  Transmission Date: 20060501
  Serious: No
  Sender: FDA-Public Use
  Company Number: US-GLAXOSMITHKLINE-A0579929A

PATIENT
  Age: 51 Year
  Sex: Female

DRUGS (5)
  1. LOTRONEX [Suspect]
     Indication: IRRITABLE BOWEL SYNDROME
     Dosage: 1MG TWICE PER DAY
     Route: 048
     Dates: start: 20040101
  2. SYNTHROID [Concomitant]
  3. LISINOPRIL [Concomitant]
  4. PROTONIX [Concomitant]
  5. NORVASC [Concomitant]

REACTIONS (1)
  - DRUG INEFFECTIVE [None]
